FAERS Safety Report 8932282 (Version 1)
Quarter: 2012Q4

REPORT INFORMATION
  Report Type: 
  Country: MX (occurrence: MX)
  Receive Date: 20121128
  Receipt Date: 20121128
  Transmission Date: 20130627
  Serious: Yes (Other)
  Sender: FDA-Public Use
  Company Number: PHHY2012MX108570

PATIENT
  Age: 72 Year
  Sex: Female

DRUGS (1)
  1. EXFORGE [Suspect]
     Indication: HYPERTENSION
     Dosage: 1 DF, 1 tablet (valsartan 160mg and amlodipine 05mg) daily
     Route: 048

REACTIONS (4)
  - Asphyxia [Not Recovered/Not Resolved]
  - Asthma [Not Recovered/Not Resolved]
  - Renal pain [Not Recovered/Not Resolved]
  - Tachycardia [Not Recovered/Not Resolved]
